FAERS Safety Report 4987114-2 (Version None)
Quarter: 2006Q2

REPORT INFORMATION
  Report Type: 
  Country: None (occurrence: None)
  Receive Date: 20060501
  Receipt Date: 20060420
  Transmission Date: 20061013
  Serious: Yes (Hospitalization)
  Sender: FDA-Public Use
  Company Number: 2006AP01867

PATIENT
  Age: 15839 Day
  Sex: Female

DRUGS (19)
  1. IRESSA [Suspect]
     Indication: BREAST CANCER
     Route: 048
  2. EPIRUBICIN [Suspect]
     Indication: BREAST CANCER
     Route: 042
     Dates: start: 20060202, end: 20060202
  3. EPIRUBICIN [Suspect]
     Route: 042
     Dates: start: 20060224, end: 20060224
  4. EPIRUBICIN [Suspect]
     Route: 042
     Dates: start: 20060316, end: 20060316
  5. EPIRUBICIN [Suspect]
     Route: 042
     Dates: start: 20060406, end: 20060406
  6. CYCLOPHOSPHAMIDE [Suspect]
     Indication: BREAST CANCER
     Route: 042
     Dates: start: 20060202, end: 20060202
  7. CYCLOPHOSPHAMIDE [Suspect]
     Route: 042
     Dates: start: 20060224, end: 20060224
  8. CYCLOPHOSPHAMIDE [Suspect]
     Route: 042
     Dates: start: 20060316, end: 20060316
  9. CYCLOPHOSPHAMIDE [Suspect]
     Route: 042
     Dates: start: 20060406, end: 20060406
  10. ZOFRAN [Concomitant]
     Indication: NAUSEA
     Route: 048
     Dates: start: 20060202, end: 20060224
  11. ZOFRAN [Concomitant]
     Indication: VOMITING
     Route: 048
     Dates: start: 20060202, end: 20060224
  12. ZOFRAN [Concomitant]
     Route: 054
     Dates: start: 20060203, end: 20060224
  13. ZOFRAN [Concomitant]
     Route: 054
     Dates: start: 20060203, end: 20060224
  14. AFIPRAN [Concomitant]
     Indication: NAUSEA
     Route: 048
     Dates: start: 20060202
  15. AFIPRAN [Concomitant]
     Indication: VOMITING
     Route: 048
     Dates: start: 20060202
  16. AFIPRAN [Concomitant]
     Route: 054
     Dates: start: 20060224
  17. AFIPRAN [Concomitant]
     Route: 054
     Dates: start: 20060224
  18. CIPROXIN [Concomitant]
     Indication: FEBRILE NEUTROPENIA
     Route: 048
     Dates: start: 20060216, end: 20060227
  19. NAVOBAN [Concomitant]
     Indication: VOMITING
     Route: 048
     Dates: start: 20060224

REACTIONS (6)
  - CONJUNCTIVITIS [None]
  - FATIGUE [None]
  - INFECTION [None]
  - NAUSEA [None]
  - RASH [None]
  - VOMITING [None]
